FAERS Safety Report 12505445 (Version 2)
Quarter: 2016Q3

REPORT INFORMATION
  Report Type: Spontaneous
  Country: JP (occurrence: JP)
  Receive Date: 20160628
  Receipt Date: 20160812
  Transmission Date: 20161109
  Serious: Yes (Other)
  Sender: FDA-Public Use
  Company Number: JP-SA-2016SA118315

PATIENT

DRUGS (2)
  1. LANTUS [Suspect]
     Active Substance: INSULIN GLARGINE
     Route: 058
  2. APIDRA [Suspect]
     Active Substance: INSULIN GLULISINE
     Route: 058

REACTIONS (1)
  - Interstitial lung disease [Unknown]
